FAERS Safety Report 5188305-0 (Version None)
Quarter: 2006Q4

REPORT INFORMATION
  Report Type: 
  Country: None (occurrence: None)
  Receive Date: 20061221
  Receipt Date: 20061211
  Transmission Date: 20070319
  Serious: Yes (Hospitalization)
  Sender: FDA-Public Use
  Company Number: JP-ROCHE-474970

PATIENT
  Age: 32 Year
  Sex: Male

DRUGS (1)
  1. TAMIFLU [Suspect]
     Indication: DRUG USE FOR UNKNOWN INDICATION
     Dosage: DRUG REPORTED AS TAMIFLU CAPSULE. OSELTAMIVIR WAS ONLY ADMINISTED ONCE.
     Route: 048
     Dates: start: 20061201, end: 20061201

REACTIONS (1)
  - PNEUMONITIS [None]
